FAERS Safety Report 4607139-6 (Version None)
Quarter: 2005Q1

REPORT INFORMATION
  Report Type: 
  Country: None (occurrence: None)
  Receive Date: 20050309
  Receipt Date: 20050217
  Transmission Date: 20050727
  Serious: Yes (Other)
  Sender: FDA-Public Use
  Company Number: USA040977449

PATIENT
  Age: 73 Year
  Sex: Female
  Weight: 59 kg

DRUGS (8)
  1. FORTEO [Suspect]
     Indication: OSTEOPOROSIS
     Dosage: 20 UG/1 DAY
  2. EVISTA [Suspect]
     Indication: OSTEOPOROSIS
  3. MIACALCIN [Concomitant]
  4. ONE SOURCE WOMEN'S VITAMINS [Concomitant]
  5. CLARITIN [Concomitant]
  6. CITRACAL (CALCIUM CITRATE) [Concomitant]
  7. VITAMIN E [Concomitant]
  8. CALCIUM WITH VITAMIN D [Concomitant]

REACTIONS (12)
  - CHEST DISCOMFORT [None]
  - DIZZINESS [None]
  - FALL [None]
  - FATIGUE [None]
  - FEELING ABNORMAL [None]
  - INTERMITTENT CLAUDICATION [None]
  - LIMB INJURY [None]
  - LOSS OF CONSCIOUSNESS [None]
  - NAUSEA [None]
  - PALPITATIONS [None]
  - TACHYCARDIA [None]
  - UNEVALUABLE EVENT [None]
